FAERS Safety Report 7090865-X (Version None)
Quarter: 2010Q4

REPORT INFORMATION
  Report Type: 
  Country: None (occurrence: None)
  Receive Date: 20101109
  Receipt Date: 20090205
  Transmission Date: 20110411
  Serious: Yes (Death)
  Sender: FDA-Public Use
  Company Number: US-BAYER-201038721NA

PATIENT
  Age: 66 Year
  Sex: Male

DRUGS (1)
  1. TRASYLOL [Suspect]
     Indication: PRODUCT USED FOR UNKNOWN INDICATION
     Route: 042
     Dates: start: 19941201

REACTIONS (9)
  - ANXIETY [None]
  - CARDIAC ARREST [None]
  - CARDIAC FAILURE CONGESTIVE [None]
  - CORONARY ARTERY DISEASE [None]
  - EMOTIONAL DISTRESS [None]
  - FEAR [None]
  - PAIN [None]
  - STRESS [None]
  - UNEVALUABLE EVENT [None]
